FAERS Safety Report 5497065-5 (Version None)
Quarter: 2007Q4

REPORT INFORMATION
  Report Type: 
  Country: None (occurrence: None)
  Receive Date: 20071023
  Receipt Date: 20071008
  Transmission Date: 20080405
  Serious: Yes (Other)
  Sender: FDA-Public Use
  Company Number: 2007S1010078

PATIENT
  Age: 40 Year
  Sex: Female

DRUGS (8)
  1. SERTRALINE [Suspect]
     Indication: DEPRESSION
     Dosage: 1 DF; DAILY , ORAL
     Route: 048
     Dates: start: 20070904
  2. CITALOPRAM (CITALOPRAM) [Concomitant]
  3. CO-CODAMOL (PANADEINE CO) [Concomitant]
  4. MORPHINE SULPHATE (MORPHINE SULPHATE) [Concomitant]
  5. TOLDERODINE L-TARTRATE  (TOLDERODINE L-TARTRATE) [Concomitant]
  6. INFUMORPH [Concomitant]
  7. CLOTRIMAZOLE [Concomitant]
  8. VENTOLIN [Concomitant]

REACTIONS (1)
  - DYSKINESIA [None]
